FAERS Safety Report 8021323-3 (Version None)
Quarter: 2012Q1

REPORT INFORMATION
  Report Type: 
  Country: None (occurrence: None)
  Receive Date: 20120104
  Receipt Date: 20111227
  Transmission Date: 20120608
  Serious: Yes (Other)
  Sender: FDA-Public Use
  Company Number: US-BAYER-2011-062984

PATIENT
  Age: 42 Year
  Sex: Female
  Weight: 79.365 kg

DRUGS (5)
  1. NEXIUM [Concomitant]
  2. ACETAMINOPHEN [Concomitant]
  3. PROTONIX [Concomitant]
  4. YAZ [Suspect]
     Indication: CONTRACEPTION
     Dosage: UNK
     Dates: start: 20090114, end: 20100301
  5. IBUPROFEN (ADVIL) [Concomitant]

REACTIONS (6)
  - GALLBLADDER INJURY [None]
  - INJURY [None]
  - SCAR [None]
  - CHOLECYSTITIS CHRONIC [None]
  - PAIN [None]
  - EMOTIONAL DISTRESS [None]
